FAERS Safety Report 7210883-8 (Version None)
Quarter: 2010Q4

REPORT INFORMATION
  Report Type: 
  Country: None (occurrence: None)
  Receive Date: 20101223
  Receipt Date: 20101216
  Transmission Date: 20110411
  Serious: Yes (Hospitalization)
  Sender: FDA-Public Use
  Company Number: JP-004264

PATIENT
  Sex: Male

DRUGS (6)
  1. MINIRIN [Suspect]
     Indication: ENURESIS
     Dosage: 10 ?G QD NASAL; 10 ?G BID NASAL; 20 ?G NASAL
     Route: 045
     Dates: start: 20100405, end: 20100425
  2. MINIRIN [Suspect]
     Indication: ENURESIS
     Dosage: 10 ?G QD NASAL; 10 ?G BID NASAL; 20 ?G NASAL
     Route: 045
     Dates: start: 20100426, end: 20100822
  3. MINIRIN [Suspect]
     Indication: ENURESIS
     Dosage: 10 ?G QD NASAL; 10 ?G BID NASAL; 20 ?G NASAL
     Route: 045
     Dates: start: 20101024, end: 20101110
  4. TRYPTANOL /00002201/ (TRYPTANOL) (NOT SPECIFIED) [Suspect]
     Indication: ENURESIS
     Dosage: 10 MG
     Dates: start: 20101024, end: 20101110
  5. STAYBLA (STAYBLA) (NOT SPECIFIED) [Suspect]
     Indication: ENURESIS
     Dosage: 0.2 MG QD ORAL
     Route: 048
     Dates: start: 20101024, end: 20101110
  6. PROPIVERINE HYDROCHLORIDE [Concomitant]

REACTIONS (7)
  - CONVULSION [None]
  - DRUG EFFECT DECREASED [None]
  - ELECTROENCEPHALOGRAM ABNORMAL [None]
  - EPILEPSY [None]
  - HYPONATRAEMIA [None]
  - LOSS OF CONSCIOUSNESS [None]
  - VOMITING [None]
